FAERS Safety Report 20353171 (Version 1)
Quarter: 2022Q1

REPORT INFORMATION
  Report Type: Spontaneous
  Country: US (occurrence: US)
  Receive Date: 20220119
  Receipt Date: 20220119
  Transmission Date: 20220423
  Serious: No
  Sender: FDA-Public Use
  Company Number: US-PFIZER INC-2021547026

PATIENT
  Age: 60 Year
  Sex: Female

DRUGS (1)
  1. LYRICA [Suspect]
     Active Substance: PREGABALIN
     Dosage: 3 A DAY

REACTIONS (4)
  - Withdrawal syndrome [Unknown]
  - Influenza like illness [Unknown]
  - Fatigue [Unknown]
  - Product dose omission in error [Unknown]
